FAERS Safety Report 7864515-6 (Version None)
Quarter: 2011Q4

REPORT INFORMATION
  Report Type: 
  Country: None (occurrence: None)
  Receive Date: 20111028
  Receipt Date: 20111024
  Transmission Date: 20120403
  Serious: No
  Sender: FDA-Public Use
  Company Number: US-PFIZER INC-2011258403

PATIENT
  Sex: Male

DRUGS (1)
  1. PRISTIQ [Suspect]
     Dosage: UNK

REACTIONS (4)
  - ANXIETY [None]
  - DISTURBANCE IN ATTENTION [None]
  - PARAESTHESIA [None]
  - LETHARGY [None]
